FAERS Safety Report 9647380 (Version 1)
Quarter: 2013Q4

REPORT INFORMATION
  Report Type: Spontaneous
  Country: FR (occurrence: FR)
  Receive Date: 20131028
  Receipt Date: 20131028
  Transmission Date: 20140711
  Serious: Yes (Hospitalization)
  Sender: FDA-Public Use
  Company Number: FR-ROCHE-1294710

PATIENT
  Age: 81 Year
  Sex: Male

DRUGS (5)
  1. ZELBORAF [Suspect]
     Indication: PRODUCT USED FOR UNKNOWN INDICATION
     Route: 048
     Dates: start: 20130731, end: 20130813
  2. ZELBORAF [Suspect]
     Route: 048
     Dates: start: 20130828, end: 20130923
  3. LERCANIDIPINE [Concomitant]
     Route: 065
  4. BISOPROLOL [Concomitant]
     Route: 065
  5. ATORVASTATIN [Concomitant]
     Route: 065

REACTIONS (1)
  - Renal failure acute [Recovered/Resolved]
